FAERS Safety Report 5420736-3 (Version None)
Quarter: 2007Q3

REPORT INFORMATION
  Report Type: 
  Country: None (occurrence: None)
  Receive Date: 20070821
  Receipt Date: 20070815
  Transmission Date: 20080115
  Serious: Yes (Hospitalization)
  Sender: FDA-Public Use
  Company Number: US-BRISTOL-MYERS SQUIBB COMPANY-13878558

PATIENT
  Age: 69 Year
  Sex: Male
  Weight: 70 kg

DRUGS (18)
  1. DOCETAXEL [Suspect]
     Indication: NON-SMALL CELL LUNG CANCER METASTATIC
     Route: 042
     Dates: start: 20050627, end: 20050627
  2. TORSEMIDE [Concomitant]
     Dates: start: 20040101
  3. COREG [Concomitant]
     Indication: HYPERTENSION
     Route: 048
     Dates: start: 20050101
  4. ZOCOR [Concomitant]
     Indication: HYPERCHOLESTEROLAEMIA
     Dates: end: 20050711
  5. TRENTAL [Concomitant]
     Indication: PERIPHERAL VASCULAR DISORDER
  6. LISINOPRIL [Concomitant]
     Indication: HYPERTENSION
     Dates: start: 20040101
  7. PLAVIX [Concomitant]
     Indication: PERIPHERAL VASCULAR DISORDER
  8. LASIX [Concomitant]
     Indication: CARDIAC FAILURE CONGESTIVE
     Dosage: DOSAGE 20-50 MG
     Dates: start: 20050601
  9. MULTI-VITAMIN [Concomitant]
     Indication: VITAMIN SUPPLEMENTATION
  10. FOLIC ACID [Concomitant]
     Indication: VITAMIN SUPPLEMENTATION
     Dates: start: 20050101
  11. POTASSIUM CHLORIDE [Concomitant]
     Indication: MINERAL SUPPLEMENTATION
     Dates: start: 20050613, end: 20050703
  12. ARANESP [Concomitant]
     Indication: ANAEMIA
     Dates: start: 20050627
  13. MEGACE [Concomitant]
     Indication: ANOREXIA
     Dates: start: 20050101
  14. OXANDRIN [Concomitant]
     Indication: ANOREXIA
     Dates: start: 20050627
  15. SODIUM CHLORIDE [Concomitant]
     Indication: DEHYDRATION
     Dates: start: 20050703, end: 20050703
  16. SULFADIAZINE [Concomitant]
     Indication: SKIN ULCER
  17. TAXOL [Concomitant]
     Indication: LUNG NEOPLASM MALIGNANT
     Dates: start: 20050718, end: 20050725
  18. CARBOPLATIN [Concomitant]
     Indication: LUNG NEOPLASM MALIGNANT
     Dates: start: 20050718, end: 20050725

REACTIONS (14)
  - ANAEMIA [None]
  - CORONARY ARTERY DISEASE [None]
  - DISEASE PROGRESSION [None]
  - FEBRILE NEUTROPENIA [None]
  - GASTROINTESTINAL HAEMORRHAGE [None]
  - HYPOTENSION [None]
  - LUNG INFILTRATION [None]
  - MALIGNANT PLEURAL EFFUSION [None]
  - PERIPHERAL VASCULAR DISORDER [None]
  - PHARYNGEAL LESION [None]
  - PLEURAL EFFUSION [None]
  - SALIVARY HYPERSECRETION [None]
  - SKIN ULCER [None]
  - WHITE BLOOD CELL COUNT DECREASED [None]
